FAERS Safety Report 5551594-4 (Version None)
Quarter: 2007Q4

REPORT INFORMATION
  Report Type: 
  Country: None (occurrence: None)
  Receive Date: 20071129
  Receipt Date: 20070521
  Transmission Date: 20080405
  Serious: Yes (Other)
  Sender: FDA-Public Use
  Company Number: US200603005118

PATIENT
  Age: 47 Year
  Sex: Male
  Weight: 120.2 kg

DRUGS (7)
  1. ZYPREXA [Suspect]
     Dosage: 10 MG,
     Dates: start: 19980621, end: 20000304
  2. NORTRIPTYLINE HYDROCHLORIDE [Concomitant]
  3. PRAZOSIN HCL [Concomitant]
  4. ENALAPRIL MALEATE                (ENALAPRIL MALEATE) TABLET [Concomitant]
  5. FLUPHENAZINE HYDROCHLORIDE                  (FLUPHENAZINE HYDROCHLORID [Concomitant]
  6. GEMFIBROZIL                      (GEMFIBROZIL) TABLET [Concomitant]
  7. HYDROCHLOROTHIAZIDE [Concomitant]

REACTIONS (3)
  - COGNITIVE DISORDER [None]
  - PANCREATITIS [None]
  - TYPE 1 DIABETES MELLITUS [None]
